FAERS Safety Report 4885870-5 (Version None)
Quarter: 2006Q1

REPORT INFORMATION
  Report Type: 
  Country: None (occurrence: None)
  Receive Date: 20060120
  Receipt Date: 20050303
  Transmission Date: 20060701
  Serious: Yes (Congenital Anomaly, Other)
  Sender: FDA-Public Use
  Company Number: US-ABBOTT-05P-163-0293174-00

PATIENT
  Sex: Female
  Weight: 4.54 kg

DRUGS (31)
  1. DEPAKOTE [Suspect]
     Indication: DRUG EXPOSURE DURING PREGNANCY
  2. SIMILAC WITH IRON [Concomitant]
     Indication: DRUG USE FOR UNKNOWN INDICATION
  3. AMOXICILLIN [Concomitant]
     Indication: DRUG USE FOR UNKNOWN INDICATION
  4. PEDIARIX DTPH [Concomitant]
     Indication: IMMUNISATION
     Dates: start: 20040205, end: 20040205
  5. PEDIARIX DTPH [Concomitant]
     Dates: start: 20040623, end: 20040623
  6. HIB [Concomitant]
     Indication: IMMUNISATION
     Dates: start: 20040205, end: 20040205
  7. HIB [Concomitant]
     Dates: start: 20040623, end: 20040623
  8. VARICELLA VIRUS VACCINE, LIVE [Concomitant]
     Indication: IMMUNISATION
     Dates: start: 20041220, end: 20041220
  9. CITRIC ACID [Concomitant]
     Indication: DRUG USE FOR UNKNOWN INDICATION
     Route: 048
  10. MACROGOL [Concomitant]
     Indication: DRUG USE FOR UNKNOWN INDICATION
     Route: 048
  11. POLYTUSSIN DM [Concomitant]
     Indication: COUGH
     Dosage: 1/4 TEASPOON 4 TIMES A DAY
     Route: 048
     Dates: start: 20041118
  12. POLYTUSSIN DM [Concomitant]
     Indication: NASAL CONGESTION
  13. MUPIROCIN [Concomitant]
     Indication: DRUG USE FOR UNKNOWN INDICATION
     Dates: start: 20041118
  14. CEFDINIR [Concomitant]
     Indication: DRUG USE FOR UNKNOWN INDICATION
     Dates: start: 20041220
  15. TILACTASE [Concomitant]
     Indication: RASH
     Dates: start: 20041228
  16. NYSTATIN [Concomitant]
     Indication: RASH
     Dates: start: 20041228
  17. PARACETAMOL [Concomitant]
     Indication: PAIN
     Dates: start: 20050204
  18. PARACETAMOL [Concomitant]
     Indication: PYREXIA
  19. IBUPROFEN [Concomitant]
     Indication: PAIN
     Dates: start: 20050204
  20. IBUPROFEN [Concomitant]
     Indication: PYREXIA
  21. CEPHALEXIN MONOHYDRATE [Concomitant]
     Indication: PNEUMONIA
     Dates: start: 20050830
  22. CEPHALEXIN MONOHYDRATE [Concomitant]
     Indication: URINARY TRACT INFECTION
  23. BACTRIM [Concomitant]
     Indication: PNEUMONIA
     Route: 048
     Dates: start: 20050830
  24. BACTRIM [Concomitant]
     Indication: URINARY TRACT INFECTION
  25. NYSTADERMAL [Concomitant]
     Indication: DRUG USE FOR UNKNOWN INDICATION
     Dates: start: 20050830
  26. OPV/IPV [Concomitant]
     Indication: IMMUNISATION
     Dates: start: 20040205, end: 20040205
  27. OPV/IPV [Concomitant]
     Dates: start: 20040623, end: 20040623
  28. HEPATITIS B VACCINE [Concomitant]
     Indication: IMMUNISATION
     Dates: start: 20040205, end: 20040205
  29. HEPATITIS B VACCINE [Concomitant]
     Dates: start: 20040623, end: 20040623
  30. PNEUMOCOCCAL CONJUGATE VACCINE [Concomitant]
     Indication: IMMUNISATION
     Dates: start: 20040205, end: 20040205
  31. PNEUMOCOCCAL CONJUGATE VACCINE [Concomitant]
     Dates: start: 20040623, end: 20040623

REACTIONS (12)
  - ALPHA 1 FOETOPROTEIN INCREASED [None]
  - BRAIN MALFORMATION [None]
  - CEREBRAL VENTRICLE DILATATION [None]
  - CONGENITAL CENTRAL NERVOUS SYSTEM ANOMALY [None]
  - CONGENITAL HYDROCEPHALUS [None]
  - DEVELOPMENTAL DELAY [None]
  - MECONIUM IN AMNIOTIC FLUID [None]
  - MENINGOMYELOCELE [None]
  - MENTAL RETARDATION SEVERITY UNSPECIFIED [None]
  - PHYSICAL DISABILITY [None]
  - SPEECH DISORDER DEVELOPMENTAL [None]
  - SPINA BIFIDA [None]
